FAERS Safety Report 25310963 (Version 1)
Quarter: 2025Q2

REPORT INFORMATION
  Report Type: Report from Study
  Country: CN (occurrence: CN)
  Receive Date: 20250514
  Receipt Date: 20250514
  Transmission Date: 20250717
  Serious: Yes (Other)
  Sender: BEIGENE
  Company Number: CN-BEIGENE-BGN-2025-007401

PATIENT
  Age: 67 Year

DRUGS (6)
  1. TISLELIZUMAB [Suspect]
     Active Substance: TISLELIZUMAB
     Indication: Non-small cell lung cancer
     Dosage: 300 MILLIGRAM, Q4WK
  2. TISLELIZUMAB [Suspect]
     Active Substance: TISLELIZUMAB
     Dosage: 300 MILLIGRAM, Q4WK
  3. FRUQUINTINIB [Suspect]
     Active Substance: FRUQUINTINIB
     Indication: Non-small cell lung cancer
  4. FRUQUINTINIB [Suspect]
     Active Substance: FRUQUINTINIB
     Route: 048
  5. FRUQUINTINIB [Suspect]
     Active Substance: FRUQUINTINIB
  6. FRUQUINTINIB [Suspect]
     Active Substance: FRUQUINTINIB
     Route: 048

REACTIONS (2)
  - Central hypothyroidism [Unknown]
  - Stomatitis [Unknown]
